FAERS Safety Report 19752118 (Version 1)
Quarter: 2021Q3

REPORT INFORMATION
  Report Type: Spontaneous
  Country: TW (occurrence: TW)
  Receive Date: 20210826
  Receipt Date: 20210826
  Transmission Date: 20211014
  Serious: No
  Sender: FDA-Public Use
  Company Number: TW-LUPIN PHARMACEUTICALS INC.-2021-15729

PATIENT
  Age: 36 Year
  Sex: Female

DRUGS (7)
  1. PROTHIONAMIDE [Concomitant]
     Active Substance: PROTIONAMIDE
     Indication: LATENT TUBERCULOSIS
     Dosage: UNK
     Route: 065
  2. PYRAZINAMIDE. [Concomitant]
     Active Substance: PYRAZINAMIDE
     Indication: LATENT TUBERCULOSIS
     Dosage: UNK
     Route: 065
  3. ETHAMBUTOL [Suspect]
     Active Substance: ETHAMBUTOL HYDROCHLORIDE
     Indication: LATENT TUBERCULOSIS
     Dosage: UNK, INJECTION
     Route: 065
  4. MOXIFLOXACIN. [Concomitant]
     Active Substance: MOXIFLOXACIN
     Indication: LATENT TUBERCULOSIS
     Dosage: UNK
     Route: 065
  5. VITAMIN B6 [Concomitant]
     Active Substance: PYRIDOXINE HYDROCHLORIDE
     Indication: HYPOAESTHESIA
     Dosage: UNK
     Route: 065
  6. VITAMIN B6 [Concomitant]
     Active Substance: PYRIDOXINE HYDROCHLORIDE
     Indication: PAIN IN EXTREMITY
  7. KANAMYCIN [Concomitant]
     Active Substance: KANAMYCIN A SULFATE
     Indication: LATENT TUBERCULOSIS
     Dosage: UNK
     Route: 065

REACTIONS (4)
  - Abdominal discomfort [Unknown]
  - Vertigo [Unknown]
  - Injection site pain [Unknown]
  - Vision blurred [Unknown]
